FAERS Safety Report 11169168 (Version 1)
Quarter: 2015Q2

REPORT INFORMATION
  Report Type: Spontaneous
  Country: IN (occurrence: IN)
  Receive Date: 20150605
  Receipt Date: 20150605
  Transmission Date: 20150821
  Serious: Yes (Hospitalization)
  Sender: FDA-Public Use
  Company Number: PHHY2015IN065643

PATIENT
  Age: 55 Year
  Sex: Female

DRUGS (45)
  1. SALBUTAMOL [Concomitant]
     Active Substance: ALBUTEROL
     Indication: HYPOTHALAMIC PITUITARY ADRENAL AXIS SUPPRESSION
  2. BUDESONIDE. [Concomitant]
     Active Substance: BUDESONIDE
     Indication: HYPOTHALAMIC PITUITARY ADRENAL AXIS SUPPRESSION
  3. PANTOPRAZOLE [Concomitant]
     Active Substance: PANTOPRAZOLE SODIUM
     Indication: CATARACT
  4. PREDNISOLONE. [Concomitant]
     Active Substance: PREDNISOLONE
     Indication: DIABETES MELLITUS
     Dosage: 10 MG
     Route: 065
  5. PREDNISOLONE. [Concomitant]
     Active Substance: PREDNISOLONE
     Indication: HYPOTHALAMIC PITUITARY ADRENAL AXIS SUPPRESSION
  6. BUDESONIDE. [Concomitant]
     Active Substance: BUDESONIDE
     Indication: DIABETES MELLITUS
     Route: 055
  7. ZOLEDRONIC ACID. [Concomitant]
     Active Substance: ZOLEDRONIC ACID
     Indication: DIABETES MELLITUS
     Dosage: 5 MG/ML
     Route: 042
  8. CALCIUM VITAMIN D [Concomitant]
     Active Substance: CALCIUM\VITAMIN D
     Indication: CATARACT
  9. GELARGIN [Concomitant]
     Active Substance: FLUOCINOLONE ACETONIDE
     Indication: CATARACT
  10. GELARGIN [Concomitant]
     Active Substance: FLUOCINOLONE ACETONIDE
     Indication: HYPOTHALAMIC PITUITARY ADRENAL AXIS SUPPRESSION
  11. ALCORTIN//HYDROCORTISONE [Concomitant]
     Indication: CATARACT
  12. ACEBROFYLLINE [Concomitant]
     Indication: CATARACT
  13. PANTOPRAZOLE [Concomitant]
     Active Substance: PANTOPRAZOLE SODIUM
     Indication: DIABETES MELLITUS
     Dosage: 40 MG, QID
     Route: 065
  14. SALBUTAMOL [Concomitant]
     Active Substance: ALBUTEROL
     Indication: DIABETES MELLITUS
     Route: 055
  15. ALCORTIN//HYDROCORTISONE [Concomitant]
     Indication: OSTEOPOROSIS
  16. PANTOPRAZOLE [Concomitant]
     Active Substance: PANTOPRAZOLE SODIUM
     Indication: HYPOTHALAMIC PITUITARY ADRENAL AXIS SUPPRESSION
  17. PREDNISOLONE. [Concomitant]
     Active Substance: PREDNISOLONE
     Indication: OSTEOPOROSIS
     Dosage: 40 MG
  18. PREDNISOLONE. [Concomitant]
     Active Substance: PREDNISOLONE
     Indication: CATARACT
  19. HUMAN INSULIN [Concomitant]
     Active Substance: INSULIN HUMAN
     Indication: DIABETES MELLITUS
     Dosage: 16U-18U-8U
     Route: 065
  20. HUMAN INSULIN [Concomitant]
     Active Substance: INSULIN HUMAN
     Indication: OSTEOPOROSIS
  21. HUMAN INSULIN [Concomitant]
     Active Substance: INSULIN HUMAN
     Indication: HYPOTHALAMIC PITUITARY ADRENAL AXIS SUPPRESSION
  22. BUDESONIDE. [Concomitant]
     Active Substance: BUDESONIDE
     Indication: CATARACT
  23. GELARGIN [Concomitant]
     Active Substance: FLUOCINOLONE ACETONIDE
     Indication: DIABETES MELLITUS
     Dosage: 14 U, UNK
     Route: 065
  24. ZOLEDRONIC ACID. [Concomitant]
     Active Substance: ZOLEDRONIC ACID
     Indication: OSTEOPOROSIS
  25. CALCIUM VITAMIN D [Concomitant]
     Active Substance: CALCIUM\VITAMIN D
     Indication: DIABETES MELLITUS
     Route: 065
  26. ALCORTIN//HYDROCORTISONE [Concomitant]
     Indication: HYPOTHALAMIC PITUITARY ADRENAL AXIS SUPPRESSION
  27. ACEBROFYLLINE [Concomitant]
     Indication: HYPOTHALAMIC PITUITARY ADRENAL AXIS SUPPRESSION
  28. BETAMETHASONE [Suspect]
     Active Substance: BETAMETHASONE
     Indication: ASTHMA
     Dosage: 10 MG, QID
     Route: 065
  29. SALBUTAMOL [Concomitant]
     Active Substance: ALBUTEROL
     Indication: OSTEOPOROSIS
  30. CALCIUM VITAMIN D [Concomitant]
     Active Substance: CALCIUM\VITAMIN D
     Indication: OSTEOPOROSIS
  31. CALCIUM VITAMIN D [Concomitant]
     Active Substance: CALCIUM\VITAMIN D
     Indication: HYPOTHALAMIC PITUITARY ADRENAL AXIS SUPPRESSION
  32. GELARGIN [Concomitant]
     Active Substance: FLUOCINOLONE ACETONIDE
     Indication: OSTEOPOROSIS
  33. ALCORTIN//HYDROCORTISONE [Concomitant]
     Indication: DIABETES MELLITUS
     Dosage: 100 MG, TID
     Route: 065
  34. PANTOPRAZOLE [Concomitant]
     Active Substance: PANTOPRAZOLE SODIUM
     Indication: OSTEOPOROSIS
  35. FLUTICASONE PROPIONATE. [Concomitant]
     Active Substance: FLUTICASONE PROPIONATE
     Indication: DIABETES MELLITUS
     Dosage: 250 MCG/ML, BID
     Route: 065
  36. FLUTICASONE PROPIONATE. [Concomitant]
     Active Substance: FLUTICASONE PROPIONATE
     Indication: HYPOTHALAMIC PITUITARY ADRENAL AXIS SUPPRESSION
  37. HUMAN INSULIN [Concomitant]
     Active Substance: INSULIN HUMAN
     Indication: CATARACT
  38. BUDESONIDE. [Concomitant]
     Active Substance: BUDESONIDE
     Indication: OSTEOPOROSIS
  39. ZOLEDRONIC ACID. [Concomitant]
     Active Substance: ZOLEDRONIC ACID
     Indication: CATARACT
  40. FLUTICASONE PROPIONATE. [Concomitant]
     Active Substance: FLUTICASONE PROPIONATE
     Indication: CATARACT
  41. SALBUTAMOL [Concomitant]
     Active Substance: ALBUTEROL
     Indication: CATARACT
  42. ZOLEDRONIC ACID. [Concomitant]
     Active Substance: ZOLEDRONIC ACID
     Indication: HYPOTHALAMIC PITUITARY ADRENAL AXIS SUPPRESSION
  43. ACEBROFYLLINE [Concomitant]
     Indication: DIABETES MELLITUS
     Dosage: 100 MG, BID
     Route: 065
  44. ACEBROFYLLINE [Concomitant]
     Indication: OSTEOPOROSIS
  45. FLUTICASONE PROPIONATE. [Concomitant]
     Active Substance: FLUTICASONE PROPIONATE
     Indication: OSTEOPOROSIS

REACTIONS (5)
  - Cataract [Recovering/Resolving]
  - Drug administration error [Unknown]
  - Osteoporosis [Recovering/Resolving]
  - Hypothalamic pituitary adrenal axis suppression [Recovering/Resolving]
  - Diabetes mellitus [Recovering/Resolving]
